FAERS Safety Report 12364495 (Version 1)
Quarter: 2016Q2

REPORT INFORMATION
  Report Type: Spontaneous
  Country: US (occurrence: US)
  Receive Date: 20160512
  Receipt Date: 20160512
  Transmission Date: 20160815
  Serious: Yes (Hospitalization)
  Sender: FDA-Public Use
  Company Number: US-ACTELION-A-US2016-135865

PATIENT
  Age: 49 Year
  Sex: Female

DRUGS (10)
  1. REMODULIN [Concomitant]
     Active Substance: TREPROSTINIL
     Dosage: 100 NG/KG, PER MIN
     Dates: start: 20140128
  2. PRILOSEC [Concomitant]
     Active Substance: OMEPRAZOLE MAGNESIUM
     Dosage: 20 MG, PRN
     Dates: start: 20120710
  3. SPIRONOLACTONE. [Concomitant]
     Active Substance: SPIRONOLACTONE
     Dosage: 25 MG, QD
     Route: 048
     Dates: start: 20120710
  4. OPSUMIT [Suspect]
     Active Substance: MACITENTAN
     Indication: PULMONARY ARTERIAL HYPERTENSION
     Dosage: 10 MG, QD
     Route: 048
     Dates: start: 20160411
  5. BUMEX [Concomitant]
     Active Substance: BUMETANIDE
     Dosage: 2 MG, QD
     Route: 048
     Dates: start: 20141216
  6. DIGOXIN. [Concomitant]
     Active Substance: DIGOXIN
     Dosage: 125 MCG, QD
     Route: 048
     Dates: start: 20141118
  7. LIDOCAINE. [Concomitant]
     Active Substance: LIDOCAINE
     Dosage: 5%, Q12HRS ON, 12HRS OFF
     Route: 062
     Dates: start: 20150610
  8. REVATIO [Concomitant]
     Active Substance: SILDENAFIL CITRATE
     Dosage: 20 MG, 4 TAB, TID
     Route: 048
     Dates: start: 20101024
  9. PERCOCET [Concomitant]
     Active Substance: ACETAMINOPHEN\OXYCODONE HYDROCHLORIDE
     Dosage: 10-325 MG, 1 TAB Q4-6HRS PRN
     Route: 048
     Dates: start: 20141216
  10. K-TAB [Concomitant]
     Active Substance: POTASSIUM CHLORIDE
     Dosage: 20 MEQ, QD
     Route: 048
     Dates: start: 20070418

REACTIONS (3)
  - Dyspnoea [Unknown]
  - Abdominal pain [Unknown]
  - Oedema [Unknown]

NARRATIVE: CASE EVENT DATE: 20160430
